FAERS Safety Report 17837861 (Version 4)
Quarter: 2020Q3

REPORT INFORMATION
  Report Type: Report from Study
  Country: US (occurrence: US)
  Receive Date: 20200528
  Receipt Date: 20200721
  Transmission Date: 20201103
  Serious: Yes (Hospitalization)
  Sender: FDA-Public Use
  Company Number: US-ACTELION-A-NJ2019-190358

PATIENT
  Age: 76 Year
  Sex: Female
  Weight: 51.7 kg

DRUGS (4)
  1. OPSUMIT [Suspect]
     Active Substance: MACITENTAN
     Indication: PULMONARY ARTERIAL HYPERTENSION
     Dosage: 10 MG, QD
     Route: 048
     Dates: start: 20170515
  2. OXYGEN. [Concomitant]
     Active Substance: OXYGEN
  3. COUMADIN [Concomitant]
     Active Substance: WARFARIN SODIUM
  4. REVATIO [Concomitant]
     Active Substance: SILDENAFIL CITRATE

REACTIONS (19)
  - Malaise [Not Recovered/Not Resolved]
  - Abdominal distension [Unknown]
  - Fluid retention [Unknown]
  - Dementia [Unknown]
  - Abdominal pain upper [Unknown]
  - Skin tightness [Unknown]
  - Dyspnoea [Unknown]
  - Discomfort [Unknown]
  - Ascites [Unknown]
  - Pain [Unknown]
  - Amnesia [Unknown]
  - Dry mouth [Unknown]
  - Confusional state [Unknown]
  - Peripheral swelling [Unknown]
  - Hospice care [Not Recovered/Not Resolved]
  - Oxygen therapy [Unknown]
  - Memory impairment [Unknown]
  - Illness [Unknown]
  - Product dose omission issue [Unknown]

NARRATIVE: CASE EVENT DATE: 20190424
